FAERS Safety Report 17718899 (Version 2)
Quarter: 2020Q2

REPORT INFORMATION
  Report Type: Spontaneous
  Country: IT (occurrence: IT)
  Receive Date: 20200428
  Receipt Date: 20200512
  Transmission Date: 20200714
  Serious: Yes (Other)
  Sender: FDA-Public Use
  Company Number: IT-JNJFOC-20200428112

PATIENT
  Age: 46 Year
  Sex: Female

DRUGS (2)
  1. DUROGESIC [Suspect]
     Active Substance: FENTANYL
     Indication: NEURALGIA
     Route: 065
  2. NABIXIMOLS [Interacting]
     Active Substance: NABIXIMOLS
     Indication: NEURALGIA
     Route: 048

REACTIONS (5)
  - Vomiting [Recovered/Resolved]
  - Drug interaction [Recovered/Resolved]
  - Confusional state [Recovered/Resolved]
  - Presyncope [Recovered/Resolved]
  - Mental status changes [Recovered/Resolved]
